FAERS Safety Report 15003960 (Version 1)
Quarter: 2018Q2

REPORT INFORMATION
  Report Type: Spontaneous
  Country: US (occurrence: US)
  Receive Date: 20180524
  Receipt Date: 20180524
  Transmission Date: 20180711
  Serious: Yes (Other)
  Sender: FDA-Public Use
  Company Number: None

PATIENT
  Sex: Female
  Weight: 114.75 kg

DRUGS (11)
  1. AMLODIPINE [Concomitant]
     Active Substance: AMLODIPINE BESYLATE
  2. ELIQUIS [Concomitant]
     Active Substance: APIXABAN
  3. ALENDRONATE [Concomitant]
     Active Substance: ALENDRONATE SODIUM
  4. ANASTRAZOLE [Concomitant]
     Active Substance: ANASTROZOLE
  5. IBRANCE [Suspect]
     Active Substance: PALBOCICLIB
     Indication: BREAST CANCER
     Route: 048
     Dates: start: 20180510, end: 20180523
  6. GABAPENTIN. [Concomitant]
     Active Substance: GABAPENTIN
  7. ATORVASTATIN [Concomitant]
     Active Substance: ATORVASTATIN
  8. HYDRALAZINE [Concomitant]
     Active Substance: HYDRALAZINE HYDROCHLORIDE
  9. METOPROLOL. [Concomitant]
     Active Substance: METOPROLOL
  10. CLOPIDOGREL [Concomitant]
     Active Substance: CLOPIDOGREL BISULFATE
  11. ONDANSETRON [Concomitant]
     Active Substance: ONDANSETRON

REACTIONS (1)
  - Disease progression [None]
